FAERS Safety Report 25811691 (Version 1)
Quarter: 2025Q3

REPORT INFORMATION
  Report Type: Spontaneous
  Country: CN (occurrence: CN)
  Receive Date: 20250917
  Receipt Date: 20250917
  Transmission Date: 20251021
  Serious: Yes (Other)
  Sender: SANOFI AVENTIS
  Company Number: CN-SA-2025SA276092

PATIENT
  Age: 74 Year
  Sex: Male
  Weight: 50 kg

DRUGS (1)
  1. ZOLPIDEM TARTRATE [Suspect]
     Active Substance: ZOLPIDEM TARTRATE
     Indication: Insomnia
     Dosage: 10 MG, QD
     Route: 048
     Dates: start: 20250828, end: 20250828

REACTIONS (4)
  - Altered state of consciousness [Unknown]
  - Unresponsive to stimuli [Unknown]
  - Irritability [Unknown]
  - Confusional state [Unknown]

NARRATIVE: CASE EVENT DATE: 20250828
